FAERS Safety Report 21434407 (Version 2)
Quarter: 2023Q2

REPORT INFORMATION
  Report Type: Spontaneous
  Country: DE (occurrence: DE)
  Receive Date: 20221010
  Receipt Date: 20230406
  Transmission Date: 20230722
  Serious: Yes (Hospitalization, Other)
  Sender: FDA-Public Use
  Company Number: None

PATIENT
  Age: 56 Year
  Sex: Female

DRUGS (5)
  1. IBUPROFEN [Suspect]
     Active Substance: IBUPROFEN
     Indication: Intervertebral disc protrusion
     Dosage: UNK
     Route: 065
     Dates: start: 202104
  2. METAMIZOLE [Suspect]
     Active Substance: METAMIZOLE
     Indication: Intervertebral disc protrusion
     Dosage: 2 GRAM, QD (EVERY 1 DAY)
     Route: 065
     Dates: start: 202104
  3. METAMIZOLE [Suspect]
     Active Substance: METAMIZOLE
     Indication: Pain
  4. PREDNISOLONE [Suspect]
     Active Substance: PREDNISOLONE
     Indication: Intervertebral disc protrusion
     Dosage: 50 MILLIGRAM, QD (EVERY 1 DAY)
     Route: 048
     Dates: start: 202104
  5. TAPENTADOL [Suspect]
     Active Substance: TAPENTADOL
     Indication: Intervertebral disc protrusion
     Dosage: 100 MILLIGRAM, QD (EVERY 1 DAY)
     Route: 048
     Dates: start: 202104, end: 202104

REACTIONS (1)
  - Drug-induced liver injury [Recovered/Resolved]

NARRATIVE: CASE EVENT DATE: 20210101
